FAERS Safety Report 15739594 (Version 1)
Quarter: 2018Q4

REPORT INFORMATION
  Report Type: Spontaneous
  Country: US (occurrence: US)
  Receive Date: 20181218
  Receipt Date: 20181218
  Transmission Date: 20190205
  Serious: Yes (Hospitalization)
  Sender: FDA-Public Use
  Company Number: None

PATIENT
  Sex: Male

DRUGS (10)
  1. MORPHINE SUL TB 15MG [Concomitant]
     Dates: start: 20181008
  2. OXYCODONE TAB 10MG [Concomitant]
     Dates: start: 20180808
  3. MORPHINE SUL TAB 15MG ER [Concomitant]
     Dates: start: 20180808
  4. VOTRIENT [Suspect]
     Active Substance: PAZOPANIB HYDROCHLORIDE
     Indication: RENAL CANCER
     Route: 048
  5. MORPHINE SUL TAB 15MG [Concomitant]
  6. MORPHINE SUL TAB 30MG ER [Concomitant]
     Dates: start: 20181120
  7. DRONABINOL CAP 2.5MG [Concomitant]
     Dates: start: 20181031
  8. MEGESTROL AC SUS 40MG/ML [Concomitant]
     Dates: start: 20181010
  9. LEVOFLOXACIN TAB 750MG [Concomitant]
     Dates: start: 20180808
  10. BACLOFEN TAB 10MG [Concomitant]
     Dates: start: 20180808

REACTIONS (2)
  - Therapy cessation [None]
  - Weight decreased [None]
